FAERS Safety Report 6449938-4 (Version None)
Quarter: 2009Q4

REPORT INFORMATION
  Report Type: 
  Country: None (occurrence: None)
  Receive Date: 20091120
  Receipt Date: 20091120
  Transmission Date: 20100525
  Serious: Yes (Life-Threatening)
  Sender: FDA-Public Use
  Company Number: None

PATIENT

DRUGS (1)
  1. THYROID ARMOUR 1 GR TUXEDO PHARMACY, INC. [Suspect]
     Indication: HYPOTHYROIDISM
     Dosage: 1 GR DAILY PO
     Route: 048
     Dates: start: 20090620, end: 20091101

REACTIONS (4)
  - CARDIAC DISORDER [None]
  - DRUG DISPENSING ERROR [None]
  - DYSPNOEA [None]
  - MEDICATION ERROR [None]
